FAERS Safety Report 6300533-7 (Version None)
Quarter: 2009Q3

REPORT INFORMATION
  Report Type: 
  Country: None (occurrence: None)
  Receive Date: 20090806
  Receipt Date: 20090415
  Transmission Date: 20100115
  Serious: No
  Sender: FDA-Public Use
  Company Number: US-ABBOTT-09P-163-0562858-00

PATIENT
  Sex: Female
  Weight: 52.21 kg

DRUGS (8)
  1. DEPAKOTE ER [Suspect]
     Indication: MIGRAINE
     Dates: start: 20090225, end: 20090315
  2. SINEQUAN [Concomitant]
     Indication: DRUG USE FOR UNKNOWN INDICATION
  3. NEXIUM [Concomitant]
     Indication: DRUG USE FOR UNKNOWN INDICATION
  4. TOPAMAX [Concomitant]
     Indication: DRUG USE FOR UNKNOWN INDICATION
  5. THYROID PILL [Concomitant]
     Indication: DRUG USE FOR UNKNOWN INDICATION
  6. MACRODANTIN [Concomitant]
     Indication: DRUG USE FOR UNKNOWN INDICATION
  7. ZYPREXA [Concomitant]
     Indication: DEPRESSION
  8. PROZAC [Concomitant]
     Indication: DRUG USE FOR UNKNOWN INDICATION

REACTIONS (2)
  - HEADACHE [None]
  - MEDICATION RESIDUE [None]
